FAERS Safety Report 4911814-3 (Version None)
Quarter: 2006Q1

REPORT INFORMATION
  Report Type: 
  Country: None (occurrence: None)
  Receive Date: 20060215
  Receipt Date: 20060208
  Transmission Date: 20060701
  Serious: Yes (Hospitalization)
  Sender: FDA-Public Use
  Company Number: JP-BOEHRINGER INGELHEIM PHARMACEUTICALS, INC.-2006-BP-01652YA

PATIENT
  Age: 67 Year
  Sex: Male

DRUGS (4)
  1. HARNAL [Suspect]
     Route: 048
     Dates: start: 20060127, end: 20060208
  2. BLOPRESS [Concomitant]
     Route: 048
     Dates: start: 20060112, end: 20060208
  3. PROTECADIN [Concomitant]
     Route: 048
     Dates: start: 20060112, end: 20060208
  4. TEGRETOL [Concomitant]
     Route: 048
     Dates: start: 20060112, end: 20060208

REACTIONS (1)
  - DRUG ERUPTION [None]
